FAERS Safety Report 9235133 (Version 4)
Quarter: 2013Q2

REPORT INFORMATION
  Report Type: Spontaneous
  Country: US (occurrence: US)
  Receive Date: 20130416
  Receipt Date: 20130529
  Transmission Date: 20140414
  Serious: Yes (Death, Life-Threatening, Other)
  Sender: FDA-Public Use
  Company Number: US-009507513-1304USA006160

PATIENT
  Age: 48 Year
  Sex: Female
  Weight: 83.9 kg

DRUGS (9)
  1. SAPHRIS [Suspect]
     Indication: BIPOLAR II DISORDER
     Dosage: 5 MG, AT BEDTIME
     Route: 060
     Dates: start: 20130408, end: 20130410
  2. SAPHRIS [Suspect]
     Indication: AFFECTIVE DISORDER
  3. PROZAC [Concomitant]
  4. VYVANSE [Concomitant]
     Dosage: UNK
     Dates: start: 20130408
  5. TEMAZEPAM [Concomitant]
     Dosage: 60 MG, UNK
  6. TEMAZEPAM [Concomitant]
     Dosage: 30 MG, UNK
     Dates: start: 20130408
  7. ADDERALL TABLETS [Concomitant]
     Dosage: UNK
     Dates: end: 20130408
  8. AMLODIPINE [Concomitant]
     Indication: HYPERTENSION
  9. METOPROLOL [Concomitant]
     Indication: HYPERTENSION

REACTIONS (7)
  - Cardiac arrest [Fatal]
  - Ruptured cerebral aneurysm [Fatal]
  - Cough [Not Recovered/Not Resolved]
  - Dyspnoea [Not Recovered/Not Resolved]
  - Resuscitation [Not Recovered/Not Resolved]
  - Nausea [Not Recovered/Not Resolved]
  - Circulatory collapse [Not Recovered/Not Resolved]
